FAERS Safety Report 10239565 (Version 1)
Quarter: 2014Q2

REPORT INFORMATION
  Report Type: Spontaneous
  Country: US (occurrence: US)
  Receive Date: 20140616
  Receipt Date: 20140616
  Transmission Date: 20141212
  Serious: No
  Sender: FDA-Public Use
  Company Number: US-BAYER-2014-090127

PATIENT
  Age: 21 Year
  Sex: Female

DRUGS (1)
  1. SKYLA [Suspect]
     Indication: CONTRACEPTION
     Dosage: 14 ?G/D, CONT
     Dates: start: 20140501

REACTIONS (3)
  - Vaginal haemorrhage [None]
  - Dysmenorrhoea [None]
  - Amenorrhoea [None]
